FAERS Safety Report 8470334-2 (Version None)
Quarter: 2012Q2

REPORT INFORMATION
  Report Type: 
  Country: None (occurrence: None)
  Receive Date: 20120627
  Receipt Date: 20120625
  Transmission Date: 20120825
  Serious: No
  Sender: FDA-Public Use
  Company Number: US-PFIZER INC-2012152269

PATIENT
  Sex: Female
  Weight: 45.351 kg

DRUGS (1)
  1. IBUPROFEN (ADVIL) [Suspect]
     Indication: ARTHRALGIA
     Dosage: TWO TABLETS OF 200 MG, DAILY
     Route: 048
     Dates: start: 20120101, end: 20120601

REACTIONS (1)
  - ALOPECIA [None]
